FAERS Safety Report 6775820-9 (Version None)
Quarter: 2010Q2

REPORT INFORMATION
  Report Type: 
  Country: None (occurrence: None)
  Receive Date: 20100615
  Receipt Date: 20100601
  Transmission Date: 20101027
  Serious: Yes (Hospitalization)
  Sender: FDA-Public Use
  Company Number: 012914

PATIENT
  Age: 65 Year
  Sex: Female
  Weight: 63.5 kg

DRUGS (8)
  1. CIMZIA [Suspect]
     Indication: PSORIASIS
     Dosage: 400 MG 1X/MONTH SUBCUTANEOUS
     Route: 058
     Dates: start: 20090501
  2. CIMZIA [Suspect]
     Indication: RHEUMATOID ARTHRITIS
     Dosage: 400 MG 1X/MONTH SUBCUTANEOUS
     Route: 058
     Dates: start: 20090501
  3. DIOVAN [Concomitant]
  4. HYDROCHLORTHIAZID [Concomitant]
  5. ATENOLOL [Concomitant]
  6. ZOLOFT [Concomitant]
  7. WELLBUTRIN [Concomitant]
  8. LIPITOR [Concomitant]

REACTIONS (6)
  - ANAEMIA [None]
  - ESCHERICHIA INFECTION [None]
  - HYPOTENSION [None]
  - INFLUENZA LIKE ILLNESS [None]
  - RENAL FAILURE [None]
  - WEIGHT DECREASED [None]
